FAERS Safety Report 17151857 (Version 2)
Quarter: 2020Q2

REPORT INFORMATION
  Report Type: Spontaneous
  Country: US (occurrence: US)
  Receive Date: 20191213
  Receipt Date: 20200629
  Transmission Date: 20200713
  Serious: Yes (Other)
  Sender: FDA-Public Use
  Company Number: NVSC2019US026852

PATIENT
  Age: 57 Year
  Sex: Male

DRUGS (4)
  1. KYMRIAH [Suspect]
     Active Substance: TISAGENLECLEUCEL
     Indication: DIFFUSE LARGE B-CELL LYMPHOMA RECURRENT
     Dosage: UNK
     Route: 065
     Dates: start: 20190727, end: 20190727
  2. CYTOXAN [Concomitant]
     Active Substance: CYCLOPHOSPHAMIDE
     Indication: CHEMOTHERAPY
     Dosage: 250 MG/M2
     Route: 065
  3. FLUDARABINE [Concomitant]
     Active Substance: FLUDARABINE PHOSPHATE
     Indication: CHEMOTHERAPY
     Dosage: 25 MG/M2
     Route: 065
  4. PREDNISONE. [Concomitant]
     Active Substance: PREDNISONE
     Indication: CHEMOTHERAPY
     Dosage: UNK
     Route: 065

REACTIONS (7)
  - Infection [Unknown]
  - Cytokine release syndrome [Unknown]
  - Tachycardia [Unknown]
  - Heart rate increased [Unknown]
  - C-reactive protein increased [Unknown]
  - Body temperature increased [Unknown]
  - Serum ferritin increased [Unknown]
